FAERS Safety Report 5723294-9 (Version None)
Quarter: 2008Q2

REPORT INFORMATION
  Report Type: 
  Country: None (occurrence: None)
  Receive Date: 20080430
  Receipt Date: 20080227
  Transmission Date: 20081010
  Serious: No
  Sender: FDA-Public Use
  Company Number: US-ASTRAZENECA-2008UW04154

PATIENT
  Age: 80 Year
  Sex: Male
  Weight: 98.9 kg

DRUGS (15)
  1. NEXIUM [Suspect]
     Indication: GASTROOESOPHAGEAL REFLUX DISEASE
     Dosage: 1 CAPSULE EVERY 4-5-6 DAYS
     Route: 048
  2. METFORMIN HCL [Concomitant]
  3. LEVOTHYROXINE SODIUM [Concomitant]
  4. FUROSEMIDE [Concomitant]
  5. GLYBURIDE [Concomitant]
  6. SIMVASTATIN [Concomitant]
  7. FOSINOPRIL SODIUM [Concomitant]
  8. METOPROLOL TARTRATE [Concomitant]
  9. TRICOR [Concomitant]
  10. SPIRONOLACTONE [Concomitant]
  11. ASPIRIN [Concomitant]
  12. ZYRTEC [Concomitant]
  13. VITAMIN B-12 [Concomitant]
  14. FLUNISOLIDE [Concomitant]
  15. XALATAN [Concomitant]

REACTIONS (2)
  - BURNING SENSATION [None]
  - DRUG INEFFECTIVE [None]
